FAERS Safety Report 17758521 (Version 1)
Quarter: 2020Q2

REPORT INFORMATION
  Report Type: Spontaneous
  Country: US (occurrence: US)
  Receive Date: 20200507
  Receipt Date: 20200507
  Transmission Date: 20200714
  Serious: No
  Sender: FDA-Public Use
  Company Number: US-CELGENEUS-USA-20200409041

PATIENT
  Sex: Male

DRUGS (1)
  1. INREBIC [Suspect]
     Active Substance: FEDRATINIB HYDROCHLORIDE
     Indication: GENITOURINARY TRACT NEOPLASM
     Dosage: 400 MILLIGRAM
     Route: 048
     Dates: start: 20191101

REACTIONS (2)
  - Headache [Unknown]
  - Rash pruritic [Unknown]
